FAERS Safety Report 19496836 (Version 6)
Quarter: 2021Q4

REPORT INFORMATION
  Report Type: Report from Study
  Country: US (occurrence: US)
  Receive Date: 20210706
  Receipt Date: 20211126
  Transmission Date: 20220303
  Serious: Yes (Hospitalization, Other)
  Sender: FDA-Public Use
  Company Number: US-GSKCCFUS-CASE-01059807_AE-62838

PATIENT
  Age: 65 Year
  Sex: Male

DRUGS (2)
  1. BELANTAMAB MAFODOTIN [Suspect]
     Active Substance: BELANTAMAB MAFODOTIN
     Indication: Plasma cell myeloma
     Dosage: UNK
     Dates: start: 20210514
  2. BELANTAMAB MAFODOTIN [Suspect]
     Active Substance: BELANTAMAB MAFODOTIN
     Dosage: UNK

REACTIONS (11)
  - Pyrexia [Unknown]
  - Rash [Unknown]
  - Rash macular [Unknown]
  - Infection [Unknown]
  - Ulcerative keratitis [Not Recovered/Not Resolved]
  - Auditory disorder [Unknown]
  - Ear discomfort [Unknown]
  - Fatigue [Unknown]
  - Dizziness [Unknown]
  - Keratopathy [Unknown]
  - Visual acuity reduced [Not Recovered/Not Resolved]

NARRATIVE: CASE EVENT DATE: 20210501
